FAERS Safety Report 7896331-3 (Version None)
Quarter: 2011Q4

REPORT INFORMATION
  Report Type: 
  Country: None (occurrence: None)
  Receive Date: 20111028
  Receipt Date: 20110303
  Transmission Date: 20120403
  Serious: Yes (Hospitalization)
  Sender: FDA-Public Use
  Company Number: DSA_45163_2011

PATIENT
  Age: 26 Year
  Sex: Male

DRUGS (9)
  1. PROZAC [Suspect]
     Indication: DEPRESSION
     Dosage: (DF)
     Dates: end: 20110101
  2. PROZAC [Suspect]
     Indication: ANXIETY
     Dosage: (DF)
     Dates: end: 20110101
  3. WELLBUTRIN [Suspect]
     Indication: DEPRESSION
     Dosage: (DF ORAL)
     Route: 048
     Dates: end: 20110101
  4. WELLBUTRIN [Suspect]
     Indication: ANXIETY
     Dosage: (DF ORAL)
     Route: 048
     Dates: end: 20110101
  5. ABILIFY [Suspect]
     Indication: ANXIETY
     Dosage: (DF)
     Dates: end: 20110101
  6. ABILIFY [Suspect]
     Indication: DEPRESSION
     Dosage: (DF)
     Dates: end: 20110101
  7. CLONAZEPAM [Suspect]
     Indication: ANXIETY
     Dosage: (DF)
     Dates: end: 20110101
  8. CLONAZEPAM [Suspect]
     Indication: DEPRESSION
     Dosage: (DF)
     Dates: end: 20110101
  9. SEROQUEL [Concomitant]

REACTIONS (1)
  - DEPRESSION [None]
